FAERS Safety Report 10146598 (Version 2)
Quarter: 2014Q2

REPORT INFORMATION
  Report Type: Spontaneous
  Country: SE (occurrence: None)
  Receive Date: 20140429
  Receipt Date: 20140514
  Transmission Date: 20141212
  Serious: Yes (Other)
  Sender: FDA-Public Use
  Company Number: 2014GR_BP003126

PATIENT
  Age: 58 Year
  Sex: Male

DRUGS (1)
  1. FINASTERIDE (FINASTERIDE) [Suspect]
     Indication: PROSTATOMEGALY
     Dosage: 5 MG, ONCE DAILY
     Route: 048
     Dates: start: 201403

REACTIONS (4)
  - Dyspnoea [None]
  - Heart rate irregular [None]
  - Heart rate increased [None]
  - Electrocardiogram abnormal [None]
